FAERS Safety Report 16769580 (Version 1)
Quarter: 2019Q3

REPORT INFORMATION
  Report Type: Spontaneous
  Country: US (occurrence: US)
  Receive Date: 20190903
  Receipt Date: 20190903
  Transmission Date: 20191005
  Serious: No
  Sender: FDA-Public Use
  Company Number: US-009507513-1908USA010353

PATIENT
  Age: 38 Year
  Sex: Female

DRUGS (7)
  1. FOLLISTIM AQ [Suspect]
     Active Substance: FOLLITROPIN
     Indication: INFERTILITY FEMALE
     Dosage: 75 UNITS, BID
     Route: 058
     Dates: start: 20190807
  2. LEUPROLIDE [Concomitant]
     Active Substance: LEUPROLIDE
  3. ESTARYLLA [Concomitant]
     Active Substance: ETHINYL ESTRADIOL\NORGESTIMATE
  4. MEDROXYPROGESTERONE ACETATE. [Concomitant]
     Active Substance: MEDROXYPROGESTERONE ACETATE
  5. METHYLPREDNISOLONE. [Concomitant]
     Active Substance: METHYLPREDNISOLONE
  6. GANIRELIX ACETATE INJECTION [Suspect]
     Active Substance: GANIRELIX ACETATE
     Indication: INFERTILITY FEMALE
     Dosage: 250 MICROGRAM, QD
     Route: 058
     Dates: start: 20190807
  7. AZITHROMYCIN ANHYDROUS. [Concomitant]
     Active Substance: AZITHROMYCIN ANHYDROUS

REACTIONS (1)
  - Injection site rash [Recovered/Resolved]

NARRATIVE: CASE EVENT DATE: 20190826
